FAERS Safety Report 14875223 (Version 1)
Quarter: 2018Q2

REPORT INFORMATION
  Report Type: Report from Study
  Country: CA (occurrence: CA)
  Receive Date: 20180510
  Receipt Date: 20180510
  Transmission Date: 20180711
  Serious: Yes (Hospitalization, Other)
  Sender: FDA-Public Use
  Company Number: CA-JNJFOC-20180505849

PATIENT
  Age: 48 Year
  Sex: Female
  Weight: 85.9 kg

DRUGS (1)
  1. SIMPONI [Suspect]
     Active Substance: GOLIMUMAB
     Indication: RHEUMATOID ARTHRITIS
     Dosage: STRENGTH = 50 MG
     Route: 058

REACTIONS (5)
  - Cellulitis [Recovering/Resolving]
  - Pain in extremity [Recovering/Resolving]
  - Off label use [Unknown]
  - Weight decreased [Unknown]
  - Product use issue [Unknown]

NARRATIVE: CASE EVENT DATE: 2018
